FAERS Safety Report 12684262 (Version 1)
Quarter: 2016Q3

REPORT INFORMATION
  Report Type: Spontaneous
  Country: US (occurrence: US)
  Receive Date: 20160825
  Receipt Date: 20160825
  Transmission Date: 20161109
  Serious: No
  Sender: FDA-Public Use
  Company Number: US-PFIZER INC-2016380016

PATIENT
  Age: 67 Year
  Sex: Female
  Weight: 56 kg

DRUGS (2)
  1. NEURONTIN [Concomitant]
     Active Substance: GABAPENTIN
     Indication: NEURALGIA
     Dosage: 300 MG ONE CAPSULE ONCE A DAY AT NIGHT
  2. PREMPRO [Suspect]
     Active Substance: ESTROGENS, CONJUGATED\MEDROXYPROGESTERONE ACETATE
     Indication: HOT FLUSH
     Dosage: ONE CAPSULE BY MOUTH ONCE A DAY
     Route: 048

REACTIONS (5)
  - Bronchitis [Unknown]
  - Neuralgia [Unknown]
  - Condition aggravated [Unknown]
  - Viral infection [Unknown]
  - Neck injury [Unknown]
